FAERS Safety Report 14593471 (Version 3)
Quarter: 2018Q2

REPORT INFORMATION
  Report Type: Spontaneous
  Country: IT (occurrence: IT)
  Receive Date: 20180302
  Receipt Date: 20180416
  Transmission Date: 20180711
  Serious: Yes (Death)
  Sender: FDA-Public Use
  Company Number: IT-JNJFOC-20150309867

PATIENT
  Age: 39 Year
  Sex: Male

DRUGS (6)
  1. G-CSF [Concomitant]
     Active Substance: GRANULOCYTE COLONY-STIMULATING FACTOR NOS
     Indication: SUPPORTIVE CARE
     Route: 065
  2. DEXAMETHASONE. [Concomitant]
     Active Substance: DEXAMETHASONE
     Indication: PREMEDICATION
     Dosage: ADMINISTERED 30 MINUTES PRIOR TO TRABECTEDIN INFUSIONS
     Route: 065
  3. YONDELIS [Suspect]
     Active Substance: TRABECTEDIN
     Route: 042
  4. IRINOTECAN [Suspect]
     Active Substance: IRINOTECAN
     Indication: EWING^S SARCOMA
     Dosage: ON DAYS TWO AND FOUR FOR CYCLES SEVEN ONWARDS
     Route: 065
     Dates: start: 20130210, end: 20140711
  5. IRINOTECAN [Suspect]
     Active Substance: IRINOTECAN
     Indication: EWING^S SARCOMA
     Dosage: ON DAY TWO OF COURSES ONE TO SIX
     Route: 065
     Dates: start: 20131016, end: 20140709
  6. YONDELIS [Suspect]
     Active Substance: TRABECTEDIN
     Indication: EWING^S SARCOMA
     Dosage: 24 HOUR INFUSIONS, GIVEN ON DAY ONE OF EACH CYCLE
     Route: 042
     Dates: start: 20130918, end: 20140708

REACTIONS (6)
  - Hepatotoxicity [Recovered/Resolved]
  - Cerebrovascular accident [Fatal]
  - Haematotoxicity [Recovered/Resolved]
  - Diarrhoea [Recovered/Resolved]
  - Off label use [Unknown]
  - Transaminases increased [Unknown]
